FAERS Safety Report 6719372-8 (Version None)
Quarter: 2010Q2

REPORT INFORMATION
  Report Type: 
  Country: None (occurrence: None)
  Receive Date: 20100511
  Receipt Date: 20100507
  Transmission Date: 20101027
  Serious: Yes (Disabling)
  Sender: FDA-Public Use
  Company Number: DE-BRISTOL-MYERS SQUIBB COMPANY-15070808

PATIENT
  Age: 63 Year
  Sex: Male
  Weight: 82 kg

DRUGS (4)
  1. HYDROXYUREA [Suspect]
     Indication: POLYCYTHAEMIA VERA
     Dosage: 1 DF=1 TO 2G
     Route: 048
     Dates: start: 20000101
  2. HYDREA [Suspect]
     Indication: POLYCYTHAEMIA VERA
     Dates: start: 20020101
  3. ASPIRIN [Concomitant]
     Indication: POLYCYTHAEMIA VERA
     Dosage: 1DF-100 UNIT NOS
     Route: 048
     Dates: start: 20000101
  4. CYMBALTA [Concomitant]
     Indication: DEPRESSION
     Route: 048
     Dates: start: 20060101

REACTIONS (1)
  - NEUROPATHY PERIPHERAL [None]
